FAERS Safety Report 14674568 (Version 1)
Quarter: 2018Q1

REPORT INFORMATION
  Report Type: Spontaneous
  Country: FR (occurrence: FR)
  Receive Date: 20180323
  Receipt Date: 20180323
  Transmission Date: 20180509
  Serious: Yes (Hospitalization)
  Sender: FDA-Public Use
  Company Number: FR-TEVA-2018-FR-870231

PATIENT
  Age: 69 Year
  Sex: Female
  Weight: 100 kg

DRUGS (23)
  1. IPRATROPIUM (BROMURE D^) [Concomitant]
     Active Substance: IPRATROPIUM
     Route: 055
  2. LEVOTHYROX 50 MICROGRAMMES, COMPRIM? S?CABLE [Concomitant]
     Active Substance: LEVOTHYROXINE SODIUM
     Route: 048
  3. SALBUTAMOL [Concomitant]
     Active Substance: ALBUTEROL
     Route: 055
  4. ALLOPURINOL. [Concomitant]
     Active Substance: ALLOPURINOL
     Route: 048
  5. AVASTIN 25 MG/ML, SOLUTION ? DILUER POUR PERFUSION [Concomitant]
     Route: 041
  6. CACIT [Concomitant]
     Active Substance: CALCIUM\VITAMIN D
     Route: 048
  7. JANUVIA 50 MG, COMPRIM? PELLICUL? [Concomitant]
     Route: 048
  8. DIGOXINE NATIVELLE 0,25 MG, COMPRIM? [Concomitant]
     Route: 048
  9. CEFTRIAXONE SODIQUE [Concomitant]
     Active Substance: CEFTRIAXONE SODIUM
     Route: 030
  10. LASILIX 40 MG, COMPRIM? S?CABLE [Concomitant]
     Active Substance: FUROSEMIDE
     Route: 048
  11. FLUOROURACILE [Concomitant]
     Active Substance: FLUOROURACIL
     Route: 041
  12. FOSAMAX 70 MG, COMPRIM? [Concomitant]
     Route: 048
  13. OXALIPLATINE [Suspect]
     Active Substance: OXALIPLATIN
     Indication: COLON CANCER
     Route: 041
  14. BILASKA 20 MG, COMPRIM? [Concomitant]
     Route: 048
  15. SINGULAIR 5 MG, COMPRIM? ? CROQUER [Concomitant]
     Route: 048
  16. ELIQUIS [Concomitant]
     Active Substance: APIXABAN
     Route: 048
  17. PRAVASTATINE SODIQUE [Concomitant]
     Active Substance: PRAVASTATIN SODIUM
     Route: 048
  18. FOLINATE CALCIQUE [Concomitant]
     Route: 041
  19. BISOCE 2,5 MG, COMPRIM? PELLICUL? S?CABLE [Concomitant]
     Active Substance: BISOPROLOL FUMARATE
     Route: 048
  20. PARACETAMOL [Concomitant]
     Active Substance: ACETAMINOPHEN
     Route: 041
  21. GABAPENTINE [Concomitant]
     Active Substance: GABAPENTIN
     Route: 048
  22. LANSOPRAZOLE. [Concomitant]
     Active Substance: LANSOPRAZOLE
     Route: 048
  23. ONDANSETRON [Concomitant]
     Active Substance: ONDANSETRON
     Route: 041

REACTIONS (4)
  - Erythema [Recovering/Resolving]
  - Dyspnoea [Recovering/Resolving]
  - Burning sensation [Recovering/Resolving]
  - Oxygen saturation decreased [Recovering/Resolving]
